FAERS Safety Report 17833842 (Version 2)
Quarter: 2020Q2

REPORT INFORMATION
  Report Type: Spontaneous
  Country: JP (occurrence: JP)
  Receive Date: 20200528
  Receipt Date: 20200612
  Transmission Date: 20200714
  Serious: Yes (Death, Other)
  Sender: FDA-Public Use
  Company Number: JP-SUN PHARMACEUTICAL INDUSTRIES LTD-2020RR-248452

PATIENT
  Age: 74 Year
  Sex: Female

DRUGS (8)
  1. ASPIRIN [ACETYLSALICYLIC ACID] [Suspect]
     Active Substance: ASPIRIN
     Indication: PAIN IN EXTREMITY
  2. PAZOPANIB NOVARTIS PHARMA [Suspect]
     Active Substance: PAZOPANIB
     Dosage: 200 MILLIGRAM
     Route: 048
  3. DOCETAXEL (DOCETAXEL) (INFUSION) [Suspect]
     Active Substance: DOCETAXEL
     Indication: PRODUCT USED FOR UNKNOWN INDICATION
     Dosage: 25 MICROGRAM/SQ. METER, UNK
     Route: 065
  4. ASPIRIN [ACETYLSALICYLIC ACID] [Suspect]
     Active Substance: ASPIRIN
     Indication: CEREBROVASCULAR ACCIDENT
     Dosage: UNK
     Route: 065
  5. ACETAMINOPHEN (PARACETAMOL) [Suspect]
     Active Substance: ACETAMINOPHEN
     Indication: CEREBROVASCULAR ACCIDENT
     Dosage: UNK
     Route: 065
  6. ACETAMINOPHEN (PARACETAMOL) [Suspect]
     Active Substance: ACETAMINOPHEN
     Indication: PAIN IN EXTREMITY
  7. PAZOPANIB NOVARTIS PHARMA [Suspect]
     Active Substance: PAZOPANIB
     Indication: RENAL IMPAIRMENT
     Dosage: 600 MILLIGRAM, DAILY
     Route: 048
  8. PAZOPANIB NOVARTIS PHARMA [Suspect]
     Active Substance: PAZOPANIB
     Dosage: 400 MILLIGRAM
     Route: 048

REACTIONS (3)
  - Duodenal ulcer [Unknown]
  - Disease progression [Fatal]
  - Disease recurrence [Unknown]
